FAERS Safety Report 4510626-2 (Version None)
Quarter: 2004Q4

REPORT INFORMATION
  Report Type: 
  Country: None (occurrence: None)
  Receive Date: 20041124
  Receipt Date: 20040915
  Transmission Date: 20050328
  Serious: Yes (Death, Hospitalization)
  Sender: FDA-Public Use
  Company Number: US-AMGEN-US091773

PATIENT
  Sex: Male

DRUGS (6)
  1. ENBREL [Suspect]
     Indication: RHEUMATOID ARTHRITIS
     Route: 058
     Dates: start: 20021031, end: 20040809
  2. PREDNISONE [Suspect]
     Route: 048
     Dates: start: 19970101, end: 20040828
  3. HUMIRA [Suspect]
     Route: 058
     Dates: start: 20040812, end: 20040828
  4. METHOTREXATE [Concomitant]
     Route: 048
     Dates: start: 20021031, end: 20040828
  5. ACTONEL (PROCTOR + GAMBLE) [Concomitant]
     Route: 048
     Dates: start: 20040315
  6. PLAVIX [Concomitant]
     Route: 048
     Dates: start: 20040802, end: 20040828

REACTIONS (4)
  - ACUTE MYOCARDIAL INFARCTION [None]
  - CEREBROVASCULAR ACCIDENT [None]
  - DEATH [None]
  - PNEUMONIA [None]
